FAERS Safety Report 6938748-7 (Version None)
Quarter: 2010Q3

REPORT INFORMATION
  Report Type: 
  Country: None (occurrence: None)
  Receive Date: 20100820
  Receipt Date: 20100806
  Transmission Date: 20110219
  Serious: Yes (Hospitalization)
  Sender: FDA-Public Use
  Company Number: JPI-P-011785

PATIENT
  Age: 48 Year
  Sex: Male
  Weight: 81.6475 kg

DRUGS (8)
  1. XYREM [Suspect]
     Indication: SLEEP DISORDER
     Dosage: 2 IN 1 D, ORAL, 9 GM (4.5 GM, 2 IN 1 D) , ORAL, 9 GM (4.5 GM, 2 IN 1 D), ORAL
     Route: 048
     Dates: start: 20100407, end: 20100101
  2. XYREM [Suspect]
     Indication: SLEEP DISORDER
     Dosage: 2 IN 1 D, ORAL, 9 GM (4.5 GM, 2 IN 1 D) , ORAL, 9 GM (4.5 GM, 2 IN 1 D), ORAL
     Route: 048
     Dates: start: 20100101, end: 20100701
  3. XYREM [Suspect]
     Indication: SLEEP DISORDER
     Dosage: 2 IN 1 D, ORAL, 9 GM (4.5 GM, 2 IN 1 D) , ORAL, 9 GM (4.5 GM, 2 IN 1 D), ORAL
     Route: 048
     Dates: start: 20100701
  4. VENLAFAXINE HYDROCHLORIDE [Concomitant]
  5. ARMODAFINIL [Concomitant]
  6. OMEPRAZOLE [Concomitant]
  7. FENTANYL CITRATE [Concomitant]
  8. TESTOSTERONE [Concomitant]

REACTIONS (6)
  - CEREBROVASCULAR ACCIDENT [None]
  - DRUG INEFFECTIVE [None]
  - FALL [None]
  - INSOMNIA [None]
  - SPEECH DISORDER [None]
  - THYROID FUNCTION TEST ABNORMAL [None]
